FAERS Safety Report 4349557-X (Version None)
Quarter: 2004Q1

REPORT INFORMATION
  Report Type: 
  Country: None (occurrence: None)
  Receive Date: 20040329
  Receipt Date: 20031203
  Transmission Date: 20041129
  Serious: No
  Sender: FDA-Public Use
  Company Number: USA031253832

PATIENT
  Age: 59 Year
  Sex: Male
  Weight: 93 kg

DRUGS (4)
  1. STRATTERA [Suspect]
     Indication: ATTENTION DEFICIT/HYPERACTIVITY DISORDER
     Dosage: 80 MG/DAY
     Dates: start: 20031202
  2. NEXIUM [Concomitant]
  3. LIPITOR [Concomitant]
  4. ARICEPT [Concomitant]

REACTIONS (8)
  - ASTHENIA [None]
  - DECREASED APPETITE [None]
  - DIZZINESS [None]
  - DRY MOUTH [None]
  - DYSURIA [None]
  - INSOMNIA [None]
  - PHARYNGOLARYNGEAL PAIN [None]
  - PRESCRIBED OVERDOSE [None]
